FAERS Safety Report 5648015-X (Version None)
Quarter: 2008Q1

REPORT INFORMATION
  Report Type: 
  Country: None (occurrence: None)
  Receive Date: 20080229
  Receipt Date: 20080229
  Transmission Date: 20080703
  Serious: Yes (Death)
  Sender: FDA-Public Use
  Company Number: None

PATIENT
  Age: 40 Year
  Sex: Male

DRUGS (3)
  1. LAMIVUDINE/STAVUDINE [Suspect]
     Indication: HIV INFECTION
     Dosage: 300MG/60MG ORAL
     Route: 048
     Dates: start: 20061101
  2. EFAVIRENZ [Suspect]
     Indication: HIV INFECTION
     Dosage: 600MG
     Dates: start: 20061101, end: 20080122
  3. NEVIRAPINE [Suspect]
     Indication: HIV INFECTION
     Dosage: 400MG
     Dates: start: 20080103

REACTIONS (2)
  - DRUG HYPERSENSITIVITY [None]
  - HEPATOTOXICITY [None]
